FAERS Safety Report 23388158 (Version 1)
Quarter: 2024Q1

REPORT INFORMATION
  Report Type: Spontaneous
  Country: US (occurrence: None)
  Receive Date: 20240110
  Receipt Date: 20240110
  Transmission Date: 20240409
  Serious: Yes (Other)
  Sender: FDA-Public Use
  Company Number: None

PATIENT
  Age: 64 Year
  Sex: Female
  Weight: 69.75 kg

DRUGS (8)
  1. VYEPTI [Suspect]
     Active Substance: EPTINEZUMAB-JJMR
     Indication: Migraine prophylaxis
     Dosage: OTHER QUANTITY : 1 INFUSION;?OTHER FREQUENCY : 3 MONTHS;?
     Route: 042
  2. IMITREX [Concomitant]
     Active Substance: SUMATRIPTAN SUCCINATE
  3. VYEPTI [Concomitant]
     Active Substance: EPTINEZUMAB-JJMR
  4. GABAPENTIN [Concomitant]
     Active Substance: GABAPENTIN
  5. Vit. D supplement [Concomitant]
  6. Vit.B12 supplement [Concomitant]
  7. VITAMINS [Concomitant]
     Active Substance: VITAMINS
  8. OMEGA-3 FATTY ACIDS [Concomitant]
     Active Substance: OMEGA-3 FATTY ACIDS

REACTIONS (1)
  - Alopecia [None]

NARRATIVE: CASE EVENT DATE: 20231214
